FAERS Safety Report 14013256 (Version 1)
Quarter: 2017Q3

REPORT INFORMATION
  Report Type: Spontaneous
  Country: KR (occurrence: KR)
  Receive Date: 20170926
  Receipt Date: 20170926
  Transmission Date: 20171128
  Serious: Yes (Death, Other)
  Sender: FDA-Public Use
  Company Number: KR-BAYER-2017-184198

PATIENT

DRUGS (2)
  1. ULTRAVIST [Suspect]
     Active Substance: IOPROMIDE
     Indication: COMPUTERISED TOMOGRAM THORAX
     Dosage: UNK UNK, ONCE
  2. ULTRAVIST [Suspect]
     Active Substance: IOPROMIDE
     Indication: OVARIAN CANCER

REACTIONS (3)
  - Seizure [None]
  - Death [Fatal]
  - Nausea [None]
